FAERS Safety Report 18375638 (Version 9)
Quarter: 2022Q1

REPORT INFORMATION
  Report Type: Report from Study
  Country: JP (occurrence: JP)
  Receive Date: 20201013
  Receipt Date: 20220121
  Transmission Date: 20220423
  Serious: Yes (Hospitalization)
  Sender: FDA-Public Use
  Company Number: NVSJ2020JP009909

PATIENT
  Age: 61 Year
  Sex: Male
  Weight: 67.4 kg

DRUGS (5)
  1. ILARIS [Suspect]
     Active Substance: CANAKINUMAB
     Indication: Familial mediterranean fever
     Dosage: 150 MG
     Route: 058
     Dates: start: 20200720
  2. ILARIS [Suspect]
     Active Substance: CANAKINUMAB
     Dosage: 150 MG
     Route: 058
     Dates: start: 20200821
  3. ILARIS [Suspect]
     Active Substance: CANAKINUMAB
     Dosage: 300 MG
     Route: 058
     Dates: start: 20200923, end: 20200923
  4. CYCLOSPORINE [Concomitant]
     Active Substance: CYCLOSPORINE
     Indication: Familial mediterranean fever
     Route: 048
  5. AZATHIOPRINE [Concomitant]
     Active Substance: AZATHIOPRINE
     Indication: Familial mediterranean fever
     Route: 048

REACTIONS (4)
  - Melaena [Recovered/Resolved]
  - Concomitant disease aggravated [Recovered/Resolved]
  - Small intestine ulcer [Recovering/Resolving]
  - Gamma-glutamyltransferase increased [Recovered/Resolved]

NARRATIVE: CASE EVENT DATE: 20200811
